FAERS Safety Report 7058040-2 (Version None)
Quarter: 2010Q4

REPORT INFORMATION
  Report Type: 
  Country: None (occurrence: None)
  Receive Date: 20101021
  Receipt Date: 20101021
  Transmission Date: 20110411
  Serious: Yes (Hospitalization)
  Sender: FDA-Public Use
  Company Number: None

PATIENT
  Age: 57 Month
  Sex: Male
  Weight: 52.2 kg

DRUGS (2)
  1. TEMSIROLIMUS 20 [Suspect]
     Indication: SMALL CELL LUNG CANCER STAGE UNSPECIFIED
     Dosage: 20MG WEEKLY IV
     Route: 042
     Dates: start: 20100924, end: 20101008
  2. NAVELBINE [Suspect]
     Indication: SMALL CELL LUNG CANCER STAGE UNSPECIFIED
     Dosage: 2MG/M2 BI-WEEKLY IV
     Route: 042
     Dates: start: 20100924, end: 20101008

REACTIONS (6)
  - DYSPNOEA [None]
  - HEART RATE INCREASED [None]
  - NECK MASS [None]
  - PERICARDIAL EFFUSION [None]
  - PLEURAL EFFUSION [None]
  - RESPIRATORY RATE INCREASED [None]
